FAERS Safety Report 8117734-8 (Version None)
Quarter: 2011Q4

REPORT INFORMATION
  Report Type: 
  Country: None (occurrence: None)
  Receive Date: 20111227
  Receipt Date: 20101223
  Transmission Date: 20120403
  Serious: Yes (Hospitalization, Other)
  Sender: FDA-Public Use
  Company Number: PHEH2010US02020

PATIENT
  Age: 83 Year
  Sex: Female
  Weight: 83.9 kg

DRUGS (9)
  1. MULTIVITAMINS (ASCORBIC ACID, ERGOCALCIFEROL, FOLIC ACID, NICOTINAMIDE [Concomitant]
  2. FEMARA [Suspect]
     Indication: BREAST CANCER
     Dosage: 2.5 MG, DAILY, ORAL
     Route: 048
     Dates: start: 20101023
  3. ATENOLOL [Concomitant]
  4. GLIPIZIDE [Concomitant]
  5. LOVASTATIN [Concomitant]
  6. DICLOFENAC SODIUM [Concomitant]
  7. METFORMIN HCL [Concomitant]
  8. VERAPAMIL [Concomitant]
  9. FLUOXETINE [Concomitant]

REACTIONS (27)
  - ABDOMINAL PAIN UPPER [None]
  - ARTHRALGIA [None]
  - HYPERSOMNIA [None]
  - COUGH [None]
  - CONFUSIONAL STATE [None]
  - ALOPECIA [None]
  - NAUSEA [None]
  - SWELLING [None]
  - HYPOAESTHESIA [None]
  - WEIGHT INCREASED [None]
  - MYALGIA [None]
  - HYPERHIDROSIS [None]
  - PAIN IN EXTREMITY [None]
  - DYSARTHRIA [None]
  - DIARRHOEA [None]
  - DIZZINESS [None]
  - URINE COLOUR ABNORMAL [None]
  - HEMIPARESIS [None]
  - TRANSIENT ISCHAEMIC ATTACK [None]
  - DYSPNOEA [None]
  - FATIGUE [None]
  - FLUID RETENTION [None]
  - DEPRESSION [None]
  - HOT FLUSH [None]
  - MUSCULAR WEAKNESS [None]
  - PAIN [None]
  - PARAESTHESIA [None]
